FAERS Safety Report 6637002-0 (Version None)
Quarter: 2010Q1

REPORT INFORMATION
  Report Type: 
  Country: None (occurrence: None)
  Receive Date: 20100316
  Receipt Date: 20100304
  Transmission Date: 20100710
  Serious: No
  Sender: FDA-Public Use
  Company Number: US-B.I. PHARMACEUTICALS,INC./RIDGEFIELD-2010-BP-01959BP

PATIENT
  Sex: Male

DRUGS (2)
  1. ZANTAC 150 [Suspect]
     Indication: DYSPEPSIA
     Dosage: 150 MG
     Route: 048
     Dates: start: 20100128, end: 20100205
  2. ZANTAC 150 [Suspect]
     Dosage: 300 MG
     Route: 048
     Dates: start: 20100206, end: 20100210

REACTIONS (1)
  - DRUG INEFFECTIVE [None]
